FAERS Safety Report 13966813 (Version 1)
Quarter: 2017Q3

REPORT INFORMATION
  Report Type: Spontaneous
  Country: US (occurrence: US)
  Receive Date: 20170913
  Receipt Date: 20170913
  Transmission Date: 20171128
  Serious: Yes (Disabling)
  Sender: FDA-Public Use
  Company Number: None

PATIENT
  Sex: Female
  Weight: 50.85 kg

DRUGS (1)
  1. ETHAMBUTOL TABLETS [Suspect]
     Active Substance: ETHAMBUTOL HYDROCHLORIDE
     Indication: MYCOBACTERIUM AVIUM COMPLEX INFECTION
     Route: 048
     Dates: start: 20160101, end: 20170801

REACTIONS (5)
  - Vision blurred [None]
  - Visual field defect [None]
  - Impaired driving ability [None]
  - Visual acuity reduced [None]
  - Reading disorder [None]

NARRATIVE: CASE EVENT DATE: 20170706
